FAERS Safety Report 5109485-9 (Version None)
Quarter: 2006Q3

REPORT INFORMATION
  Report Type: 
  Country: None (occurrence: None)
  Receive Date: 20060918
  Receipt Date: 20060905
  Transmission Date: 20061208
  Serious: Yes (Other)
  Sender: FDA-Public Use
  Company Number: 2006097588

PATIENT
  Sex: Male

DRUGS (2)
  1. LYRICA [Suspect]
     Indication: NEURALGIA
     Dosage: 150 MG (75 MG, 2 IN 1 D)
     Dates: start: 20060728
  2. TRAMADOL HCL [Suspect]
     Indication: DRUG USE FOR UNKNOWN INDICATION

REACTIONS (8)
  - AMNESIA [None]
  - ANGIOPATHY [None]
  - DISORIENTATION [None]
  - ENURESIS [None]
  - INCOHERENT [None]
  - ISCHAEMIA [None]
  - PERIPHERAL COLDNESS [None]
  - SPEECH DISORDER [None]
